FAERS Safety Report 15500542 (Version 11)
Quarter: 2019Q2

REPORT INFORMATION
  Report Type: Spontaneous
  Country: US (occurrence: US)
  Receive Date: 20181015
  Receipt Date: 20190604
  Transmission Date: 20190711
  Serious: Yes (Other)
  Sender: FDA-Public Use
  Company Number: US-PFIZER INC-2018418664

PATIENT
  Age: 60 Year
  Sex: Female

DRUGS (44)
  1. LISINOPRIL. [Concomitant]
     Active Substance: LISINOPRIL
     Dosage: 5 MG, (1 TABLET) 1X/DAY
     Route: 048
  2. CALAN [Concomitant]
     Active Substance: VERAPAMIL HYDROCHLORIDE
     Dosage: UNK
  3. TRILEPTAL [Concomitant]
     Active Substance: OXCARBAZEPINE
     Dosage: 300 MG, (2 AND 1/2 TABLET) 1X/DAY
     Route: 048
  4. VITAMIN C [Concomitant]
     Active Substance: ASCORBIC ACID
     Dosage: UNK, 1X/DAY
  5. CYCLOBENZAPRINE. [Concomitant]
     Active Substance: CYCLOBENZAPRINE
     Dosage: UNK (0.5-1 TABLET (5-10 MG) EVERY BEDTIME, AS DIRECTED)
     Route: 048
     Dates: start: 20180626
  6. KEPPRA [Concomitant]
     Active Substance: LEVETIRACETAM
     Indication: SEIZURE
     Dosage: 0.5 DF, 2X/DAY (AS DIRECTED)
     Route: 048
     Dates: start: 20171213
  7. KEPPRA [Concomitant]
     Active Substance: LEVETIRACETAM
     Dosage: 250 MG, 2X/DAY
  8. LEVOTHYROXINE. [Concomitant]
     Active Substance: LEVOTHYROXINE
     Dosage: 1 DF, DAILY (AS DIRECTED)
     Route: 048
     Dates: start: 20180625
  9. ESCITALOPRAM [Concomitant]
     Active Substance: ESCITALOPRAM OXALATE
     Dosage: UNK, 1X/DAY (1 TABLET)
     Route: 048
  10. LEVOTHYROXINE. [Concomitant]
     Active Substance: LEVOTHYROXINE
     Dosage: 50 UG, (1 TABLET) 1X/DAY
     Route: 048
  11. ZOMIG [Concomitant]
     Active Substance: ZOLMITRIPTAN
     Dosage: UNK
  12. LEVETIRACETAM. [Concomitant]
     Active Substance: LEVETIRACETAM
     Indication: SEIZURE
     Dosage: UNK, 2X/DAY (HALF TABLET)
     Route: 048
  13. VITAMIN C [Concomitant]
     Active Substance: ASCORBIC ACID
     Dosage: UNK
     Dates: start: 20180402
  14. KEPPRA [Concomitant]
     Active Substance: LEVETIRACETAM
     Dosage: 0.5 DF (HALF TABLET), 2X/DAY
     Route: 048
  15. LISINOPRIL. [Concomitant]
     Active Substance: LISINOPRIL
     Dosage: 1 DF, ONCE A DAY
     Route: 048
     Dates: start: 20170217
  16. VITAMIN D [Concomitant]
     Active Substance: VITAMIN D NOS
     Dosage: 1 DF, DAILY (AS DIRECTED)
     Route: 048
     Dates: start: 20170502
  17. ZINC. [Concomitant]
     Active Substance: ZINC
     Dosage: 0.5 DF, 2X/WEEK (AS DIRECTED)
     Route: 048
     Dates: start: 20170502
  18. KLONOPIN [Concomitant]
     Active Substance: CLONAZEPAM
     Indication: SEIZURE
     Dosage: 1 DF, AS NEEDED AT BEDTIME
     Route: 048
  19. MAXALT [Concomitant]
     Active Substance: RIZATRIPTAN BENZOATE
     Indication: MIGRAINE
     Dosage: 1 DF, AS NEEDED (AS DIRECTED)
     Route: 048
     Dates: start: 20170217
  20. TRILEPTAL [Concomitant]
     Active Substance: OXCARBAZEPINE
     Indication: SEIZURE
     Dosage: 2.5 DF, DAILY (AS DIRECTED)
     Route: 048
     Dates: start: 20170217
  21. TRILEPTAL [Concomitant]
     Active Substance: OXCARBAZEPINE
     Dosage: DAILY, 300 MG IN AM AND 150 MG IN PM
  22. LOSARTAN. [Concomitant]
     Active Substance: LOSARTAN
     Dosage: 1 DF, DAILY
     Route: 048
     Dates: start: 20170217
  23. ONE DAILY FOR WOMEN [Concomitant]
     Dosage: UNK (AS DIRECTED)
     Dates: start: 20170217
  24. VITAMIN C [Concomitant]
     Active Substance: ASCORBIC ACID
     Dosage: UNK (AS DIRECTED)
     Dates: start: 20170217
  25. CYCLOBENZAPRINE. [Concomitant]
     Active Substance: CYCLOBENZAPRINE
     Dosage: UNK (0.5-1 TABLET (5-10 MG) EVERY BEDTIME, AS DIRECTED)
     Route: 048
     Dates: start: 20171213
  26. OXCARBAZEPINE. [Concomitant]
     Active Substance: OXCARBAZEPINE
     Indication: SEIZURE
     Dosage: UNK, 1X/DAY (2 AND HALF)
     Route: 048
  27. DILANTIN [Suspect]
     Active Substance: PHENYTOIN
     Indication: SEIZURE
     Dosage: UNK
     Route: 048
  28. ATORVASTATIN [Concomitant]
     Active Substance: ATORVASTATIN
     Dosage: 1 DF, ONCE A DAY
     Route: 048
     Dates: start: 20171213
  29. ATORVASTATIN [Concomitant]
     Active Substance: ATORVASTATIN
     Dosage: 1 DF, DAILY (AS DIRECTED)
     Route: 048
     Dates: start: 20180626
  30. ATORVASTATIN [Concomitant]
     Active Substance: ATORVASTATIN
     Dosage: 20 MG, (1 TABLET) 1X/DAY
     Route: 048
  31. BLACK COHOSH EXTRACT [Concomitant]
     Dosage: 1 DF, DAILY
     Route: 048
     Dates: start: 20171213
  32. CYCLOBENZAPRINE. [Concomitant]
     Active Substance: CYCLOBENZAPRINE
     Dosage: UNK, 1/2-1 TABLET AT BEDTIME
     Route: 048
  33. FOSTEUM [Concomitant]
     Active Substance: CHOLECALCIFEROL\GENISTEIN\ZINC GLYCINATE
     Dosage: 1 DF, DAILY (AS DIRECTED)
     Route: 048
     Dates: start: 20180626
  34. KEPPRA [Concomitant]
     Active Substance: LEVETIRACETAM
     Dosage: 0.5 DF, 2X/DAY (AS DIRECTED)
     Route: 048
     Dates: start: 20180626
  35. LAMICTAL [Concomitant]
     Active Substance: LAMOTRIGINE
     Indication: EPILEPSY
     Dosage: UNK
  36. ZARONTIN [Concomitant]
     Active Substance: ETHOSUXIMIDE
     Indication: EPILEPSY
     Dosage: UNK
  37. RIZATRIPTAN BENZOATE. [Concomitant]
     Active Substance: RIZATRIPTAN BENZOATE
     Indication: MIGRAINE
     Dosage: UNK, DAILY (AT NIGHT), (1 TABLET)
     Route: 048
  38. MAXALT [Concomitant]
     Active Substance: RIZATRIPTAN BENZOATE
     Dosage: 10 MG, (DISINTEGRATING 1 TABLET) AS NEEDED
     Route: 048
  39. ONE DAILY FOR WOMEN [Concomitant]
     Dosage: UNK
     Dates: start: 20180402
  40. BLACK COHOSH EXTRACT [Concomitant]
     Dosage: 1 DF, DAILY (AS DIRECTED)
     Route: 048
     Dates: start: 20180626
  41. FOSTEUM [Concomitant]
     Active Substance: CHOLECALCIFEROL\GENISTEIN\ZINC GLYCINATE
     Dosage: UNK
     Dates: start: 20170918
  42. LEVOTHYROXINE. [Concomitant]
     Active Substance: LEVOTHYROXINE
     Dosage: 1 DF, ONCE A DAY
     Route: 048
     Dates: start: 20171213
  43. VITAMIN D [Concomitant]
     Active Substance: VITAMIN D NOS
     Dosage: UNK, 1X/DAY
  44. FOLIC ACID. [Concomitant]
     Active Substance: FOLIC ACID
     Dosage: 1 DF, 1X/DAY
     Route: 048

REACTIONS (10)
  - Psychotic disorder [Unknown]
  - Hallucination [Unknown]
  - Poor quality sleep [Unknown]
  - Drug hypersensitivity [Unknown]
  - Cerebellar atrophy [Unknown]
  - Insomnia [Unknown]
  - Fall [Unknown]
  - Visual impairment [Unknown]
  - Ataxia [Unknown]
  - Anxiety disorder [Unknown]

NARRATIVE: CASE EVENT DATE: 20100315
